FAERS Safety Report 9536571 (Version 2)
Quarter: 2014Q1

REPORT INFORMATION
  Report Type: Spontaneous
  Country: US (occurrence: None)
  Receive Date: 20130510
  Receipt Date: 20131112
  Transmission Date: 20141002
  Serious: No
  Sender: FDA-Public Use
  Company Number: US-011426

PATIENT
  Age: 60 Year
  Sex: Female
  Weight: 91.17 kg

DRUGS (14)
  1. PICO-SALAX (NOT SPECIFIED) [Suspect]
     Indication: BOWEL PREPARATION
     Dosage: FIRST PACKET @ 5PM; SECOND PAKET @ 9PM
     Dates: start: 20130411
  2. PRISTIQ [Concomitant]
  3. SYNTHROID [Concomitant]
  4. TOVIAZ [Concomitant]
  5. SEROQUEL [Concomitant]
  6. LUNESTA [Concomitant]
  7. MULTIVITAMIN /02358601/ [Concomitant]
  8. CALCIUM [Concomitant]
  9. NATURAL VITAMIN D [Concomitant]
  10. MAGNESIUM [Concomitant]
  11. ATIVAN [Concomitant]
  12. MIRALAX /00754501/ [Concomitant]
  13. DULCOLAX STOOL SOFTENER [Concomitant]
  14. MAGNESIUM CITRATE [Concomitant]

REACTIONS (1)
  - Drug ineffective [None]
